FAERS Safety Report 19123209 (Version 2)
Quarter: 2021Q2

REPORT INFORMATION
  Report Type: Spontaneous
  Country: GB (occurrence: GB)
  Receive Date: 20210412
  Receipt Date: 20210430
  Transmission Date: 20210717
  Serious: Yes (Hospitalization, Other)
  Sender: FDA-Public Use
  Company Number: GB-MYLANLABS-2021M1021822

PATIENT
  Age: 48 Year
  Sex: Female
  Weight: 51.4 kg

DRUGS (16)
  1. GLUCOSE [Suspect]
     Active Substance: DEXTROSE
     Indication: MEDICATION DILUTION
     Dosage: 500 MILLILITER, QH (4TH CYCLE; CARBOPLATIN 450 MG + 5% GLUCOSE 500 ML OVER 1 HOUR), 545 ML
     Route: 065
     Dates: start: 20210219
  2. GLUCOSE [Suspect]
     Active Substance: DEXTROSE
     Dosage: UNK UNK, CYCLE (FIRST 3 CYCLES; CARBOPLATIN + 5% GLUCOSE)
     Route: 065
  3. CARBOPLATIN. [Suspect]
     Active Substance: CARBOPLATIN
     Dosage: UNK, CYCLE (FIRST 3 CYCLES; CARBOPLATIN + 5% GLUCOSE)
     Route: 065
  4. PARACETAMOL [Concomitant]
     Active Substance: ACETAMINOPHEN
     Indication: PAIN
     Dosage: UNK UNK, PRN (500 MG?1 G UPTO FOUR TIMES A DAY, AS REQUIRED; NOT KNOWN? LONG TERM)
     Route: 048
  5. ONDANSETRON [Suspect]
     Active Substance: ONDANSETRON
     Indication: VOMITING
     Dosage: UNK
  6. DOXIL [Suspect]
     Active Substance: DOXORUBICIN HYDROCHLORIDE
     Indication: OVARIAN CANCER
     Dosage: CYCLE ((FIRST 3 CYCLES; CAELYX + 5% GLUCOSE)),  50 MG /25 ML
     Route: 065
  7. DOXIL [Suspect]
     Active Substance: DOXORUBICIN HYDROCHLORIDE
     Dosage: 50 MILLIGRAM, CYCLE (4TH CYCLE; CAELYX 50 MG + 5% GLUCOSE 250 ML OVER 1 HOUR)
     Route: 065
     Dates: start: 20210219
  8. METOCLOPRAMIDE. [Suspect]
     Active Substance: METOCLOPRAMIDE
     Indication: VOMITING
     Dosage: UNK
  9. PFIZER?BIONTECH COVID?19 VACCINE [Concomitant]
     Active Substance: TOZINAMERAN
     Indication: COVID-19 PROPHYLAXIS
     Dosage: UNK (1 DOSE, STAT)
     Route: 030
     Dates: start: 20210221, end: 20210221
  10. DEXAMETHASONE. [Suspect]
     Active Substance: DEXAMETHASONE
     Indication: VOMITING
     Dosage: UNK
  11. DEXAMETHASONE. [Suspect]
     Active Substance: DEXAMETHASONE
     Indication: NAUSEA
     Dosage: 4 MILLIGRAM, BID
     Route: 048
     Dates: start: 20210220, end: 20210221
  12. METOCLOPRAMIDE. [Suspect]
     Active Substance: METOCLOPRAMIDE
     Indication: NAUSEA
     Dosage: 10 MILLIGRAM, TID (10 MG, UPTO THREE TIME A DAY [TID], AS REQUIRED)
     Route: 048
     Dates: start: 20201113
  13. CARBOPLATIN. [Suspect]
     Active Substance: CARBOPLATIN
     Indication: OVARIAN CANCER
     Dosage: 450 MILLIGRAM, CYCLE (4TH CYCLE; CARBOPLATIN 450 MG + 5% GLUCOSE 500 ML GIVEN OVER 1 HOUR)
     Route: 065
     Dates: start: 20210219
  14. ONDANSETRON [Suspect]
     Active Substance: ONDANSETRON
     Indication: NAUSEA
     Dosage: 8 MILLIGRAM, BID
     Route: 048
     Dates: start: 20210220, end: 20210221
  15. GLUCOSE [Suspect]
     Active Substance: DEXTROSE
     Dosage: UNK UNK, CYCLE (FIRST 3 CYCLES; CAELYX + 5% GLUCOSE)
     Route: 065
  16. GLUCOSE [Suspect]
     Active Substance: DEXTROSE
     Dosage: 250 MILLILITER, QH (4TH CYCLE; CAELYX 50 MG + 5% GLUCOSE 250 ML OVER 1 HOUR)
     Route: 065
     Dates: start: 20210219

REACTIONS (8)
  - Mouth ulceration [Unknown]
  - Vitamin B12 deficiency [Unknown]
  - Myelosuppression [Unknown]
  - Pancytopenia [Recovering/Resolving]
  - Neutropenic sepsis [Recovering/Resolving]
  - Anaemia [Unknown]
  - Thrombocytopenia [Unknown]
  - Folate deficiency [Unknown]

NARRATIVE: CASE EVENT DATE: 202103
